FAERS Safety Report 4686804-9 (Version None)
Quarter: 2005Q2

REPORT INFORMATION
  Report Type: 
  Country: None (occurrence: None)
  Receive Date: 20050608
  Receipt Date: 20050524
  Transmission Date: 20051028
  Serious: Yes (Hospitalization)
  Sender: FDA-Public Use
  Company Number: CHNY2005JP01049

PATIENT
  Age: 31 Year
  Sex: Male

DRUGS (3)
  1. TAVEGYL (NCH) (CLEMASTINE HYDROGEN FUMARATE) [Suspect]
     Indication: URTICARIA
     Dosage: ORAL
     Route: 048
     Dates: start: 20050408, end: 20050504
  2. ATARAX [Concomitant]
  3. TALION (BEPOTASTINE BESILATE) [Concomitant]

REACTIONS (1)
  - TOXIC EPIDERMAL NECROLYSIS [None]
